FAERS Safety Report 7136536 (Version 15)
Quarter: 2016Q2

REPORT INFORMATION
  Report Type: Report from Study
  Country: CA (occurrence: CA)
  Receive Date: 20091001
  Receipt Date: 20160404
  Transmission Date: 20160815
  Serious: Yes (Other)
  Sender: FDA-Public Use
  Company Number: PHHY2009CA14626

PATIENT
  Age: 40 Year
  Sex: Female

DRUGS (4)
  1. SANDOSTATIN LAR DEPOT [Suspect]
     Active Substance: OCTREOTIDE ACETATE
     Dosage: 20 MG, QW2 (EVERY 2 WEEKS)
     Route: 030
  2. SANDOSTATIN [Suspect]
     Active Substance: OCTREOTIDE ACETATE
     Indication: ACROMEGALY
     Dosage: 100 UG, BID (FOR 1 MONTH)
     Route: 058
     Dates: start: 2010, end: 2010
  3. SANDOSTATIN LAR DEPOT [Suspect]
     Active Substance: OCTREOTIDE ACETATE
     Indication: ACROMEGALY
     Dosage: 20 MG, QMO
     Route: 030
     Dates: start: 20090119
  4. SANDOSTATIN LAR DEPOT [Suspect]
     Active Substance: OCTREOTIDE ACETATE
     Dosage: 30 MG, QW3
     Route: 030

REACTIONS (28)
  - Hypoaesthesia oral [Unknown]
  - Muscular weakness [Unknown]
  - Hypoaesthesia [Unknown]
  - Visual acuity reduced [Unknown]
  - Dizziness [Unknown]
  - Swelling face [Unknown]
  - Tenderness [Unknown]
  - Neoplasm progression [Unknown]
  - Blood cortisol decreased [Unknown]
  - Vision blurred [Unknown]
  - Neoplasm [Unknown]
  - Tearfulness [Unknown]
  - Insomnia [Unknown]
  - Fatigue [Unknown]
  - Menstruation irregular [Unknown]
  - Malaise [Unknown]
  - Eye pain [Unknown]
  - Headache [Unknown]
  - Crying [Unknown]
  - Paraesthesia [Unknown]
  - Anxiety [Unknown]
  - Diplopia [Unknown]
  - Vomiting [Recovered/Resolved]
  - Inappropriate schedule of drug administration [Unknown]
  - Breast tenderness [Unknown]
  - Feeling abnormal [Unknown]
  - Balance disorder [Unknown]
  - Lethargy [Unknown]

NARRATIVE: CASE EVENT DATE: 2015
